FAERS Safety Report 10084431 (Version 2)
Quarter: 2014Q2

REPORT INFORMATION
  Report Type: Spontaneous
  Country: US (occurrence: US)
  Receive Date: 20140417
  Receipt Date: 20140527
  Transmission Date: 20141212
  Serious: No
  Sender: FDA-Public Use
  Company Number: US-009507513-1404USA004845

PATIENT
  Age: 54 Year
  Sex: Male
  Weight: 72.56 kg

DRUGS (1)
  1. CLARITIN REDITABS 12HR [Suspect]
     Indication: SEASONAL ALLERGY
     Dosage: 5 MG, BID
     Route: 048
     Dates: start: 20140401, end: 20140405

REACTIONS (1)
  - Drug ineffective [Unknown]
